FAERS Safety Report 12898272 (Version 2)
Quarter: 2016Q4

REPORT INFORMATION
  Report Type: Report from Study
  Country: IE (occurrence: IE)
  Receive Date: 20161031
  Receipt Date: 20161225
  Transmission Date: 20170207
  Serious: Yes (Other)
  Sender: FDA-Public Use
  Company Number: PHFR2016IE008640

PATIENT
  Sex: Female

DRUGS (8)
  1. FLIXOTIDE DISKUS [Concomitant]
     Active Substance: FLUTICASONE PROPIONATE
     Indication: RESPIRATORY DISORDER
     Dosage: 2 DF, BID
     Dates: start: 20150828
  2. LEXOTAN [Concomitant]
     Active Substance: BROMAZEPAM
     Indication: ANXIETY
     Dosage: 1.5 MG, QD
     Dates: start: 20070219
  3. CALCICHEW D3 FORTE [Concomitant]
     Active Substance: CALCIUM\CHOLECALCIFEROL
     Indication: OSTEOPOROSIS
     Dosage: + 400 UNITS, BID
     Route: 048
     Dates: start: 20080926
  4. COMBIVENT [Concomitant]
     Active Substance: ALBUTEROL SULFATE\IPRATROPIUM BROMIDE
     Indication: RESPIRATORY DISORDER
     Dosage: 500 MCG + 2.5 MG, QD
     Route: 055
     Dates: start: 20070219
  5. VENTOLIN [Concomitant]
     Active Substance: ALBUTEROL SULFATE
     Indication: RESPIRATORY DISORDER
     Dosage: 100 UG, QDS/ PRN
     Route: 055
     Dates: start: 20090227
  6. FOSAMAX [Concomitant]
     Active Substance: ALENDRONATE SODIUM
     Indication: OSTEOPOROSIS
     Dosage: 70 MG, QW
     Route: 048
     Dates: start: 20031212
  7. UNIPHYLLINE [Concomitant]
     Indication: RESPIRATORY DISORDER
     Dosage: 30 MG, QD
     Route: 048
     Dates: start: 20081117
  8. ULTIBRO BREEZHALER [Suspect]
     Active Substance: GLYCOPYRRONIUM\INDACATEROL
     Indication: RESPIRATORY DISORDER
     Route: 055

REACTIONS (10)
  - Back pain [Unknown]
  - Diverticulum [Unknown]
  - Respiratory tract infection [Recovered/Resolved]
  - Malaise [Unknown]
  - Abdominal pain [Unknown]
  - Dyspnoea [Recovered/Resolved]
  - Constipation [Unknown]
  - Pulmonary pain [Unknown]
  - Productive cough [Recovered/Resolved]
  - Product use issue [Unknown]
